FAERS Safety Report 24371197 (Version 9)
Quarter: 2025Q3

REPORT INFORMATION
  Report Type: Report from Study
  Country: US (occurrence: US)
  Receive Date: 20240927
  Receipt Date: 20250910
  Transmission Date: 20251021
  Serious: Yes (Hospitalization, Other)
  Sender: TAKEDA
  Company Number: US-TAKEDA-2023TUS110740

PATIENT
  Age: 67 Year
  Sex: Female
  Weight: 69 kg

DRUGS (16)
  1. VEDOLIZUMAB [Suspect]
     Active Substance: VEDOLIZUMAB
     Indication: Crohn^s disease
  2. VEDOLIZUMAB [Suspect]
     Active Substance: VEDOLIZUMAB
     Indication: Colitis ulcerative
     Dosage: 300 MILLIGRAM, Q6WEEKS
  3. VEDOLIZUMAB [Suspect]
     Active Substance: VEDOLIZUMAB
  4. VEDOLIZUMAB [Suspect]
     Active Substance: VEDOLIZUMAB
     Indication: Colitis ulcerative
     Dosage: 108 MILLIGRAM, Q2WEEKS
     Dates: start: 202409
  5. VEDOLIZUMAB [Suspect]
     Active Substance: VEDOLIZUMAB
     Indication: Crohn^s disease
     Dosage: 108 MILLIGRAM, Q2WEEKS
     Dates: start: 20241120
  6. PENICILLIN [Concomitant]
     Active Substance: PENICILLIN
  7. ACTOS [Concomitant]
     Active Substance: PIOGLITAZONE HYDROCHLORIDE
  8. ATORVASTATIN [Concomitant]
     Active Substance: ATORVASTATIN
  9. GLIPIZIDE [Concomitant]
     Active Substance: GLIPIZIDE
  10. JARDIANCE [Concomitant]
     Active Substance: EMPAGLIFLOZIN
  11. METFORMIN [Concomitant]
     Active Substance: METFORMIN HYDROCHLORIDE
  12. LINAGLIPTIN [Concomitant]
     Active Substance: LINAGLIPTIN
  13. BASAGLAR [Concomitant]
     Active Substance: INSULIN GLARGINE
  14. AMARYL [Concomitant]
     Active Substance: GLIMEPIRIDE
  15. FERROUS SULFATE [Concomitant]
     Active Substance: FERROUS SULFATE
  16. OMEPRAZOLE [Concomitant]
     Active Substance: OMEPRAZOLE

REACTIONS (8)
  - Colitis ulcerative [Recovering/Resolving]
  - Diabetes mellitus [Not Recovered/Not Resolved]
  - Deep vein thrombosis [Unknown]
  - Pulmonary embolism [Unknown]
  - Confusional state [Unknown]
  - Drug ineffective [Unknown]
  - Device leakage [Unknown]
  - Influenza [Unknown]

NARRATIVE: CASE EVENT DATE: 20250507
